APPROVED DRUG PRODUCT: LANSOPRAZOLE
Active Ingredient: LANSOPRAZOLE
Strength: 30MG
Dosage Form/Route: CAPSULE, DELAYED REL PELLETS;ORAL
Application: A203203 | Product #002 | TE Code: AB
Applicant: XIROMED PHARMA ESPANA SL
Approved: Jul 25, 2016 | RLD: No | RS: No | Type: RX